FAERS Safety Report 9495053 (Version 4)
Quarter: 2013Q4

REPORT INFORMATION
  Report Type: Spontaneous
  Country: US (occurrence: US)
  Receive Date: 20130903
  Receipt Date: 20131030
  Transmission Date: 20140711
  Serious: Yes (Hospitalization, Other)
  Sender: FDA-Public Use
  Company Number: US-SANOFI-AVENTIS-2013SA086672

PATIENT
  Age: 47 Year
  Sex: Female
  Weight: 52 kg

DRUGS (5)
  1. ARAVA [Suspect]
     Indication: RHEUMATOID ARTHRITIS
     Route: 065
     Dates: start: 20130711, end: 20130806
  2. ARAVA [Suspect]
     Indication: RHEUMATOID ARTHRITIS
     Route: 065
     Dates: start: 201308, end: 20130806
  3. PLAQUENIL [Concomitant]
     Indication: SYSTEMIC LUPUS ERYTHEMATOSUS
     Dates: start: 2010, end: 20130806
  4. PREDNISONE [Concomitant]
     Indication: ARTHRALGIA
     Dates: start: 2010, end: 20130806
  5. NYSTATIN [Concomitant]
     Indication: FUNGAL INFECTION
     Dates: start: 201307

REACTIONS (19)
  - Adverse drug reaction [Unknown]
  - Colitis [Unknown]
  - Rectal haemorrhage [Unknown]
  - Conjunctivitis [Unknown]
  - Loss of consciousness [Unknown]
  - Head injury [Unknown]
  - Colitis [Unknown]
  - Keratitis [Unknown]
  - Stevens-Johnson syndrome [Unknown]
  - Skin exfoliation [Unknown]
  - Pancytopenia [Unknown]
  - Pancreatitis [Unknown]
  - Rash [Not Recovered/Not Resolved]
  - Diarrhoea [Unknown]
  - Dehydration [Unknown]
  - Weight decreased [Unknown]
  - Dry mouth [Not Recovered/Not Resolved]
  - Decreased appetite [Unknown]
  - Mucosal inflammation [Unknown]
